FAERS Safety Report 10255433 (Version 1)
Quarter: 2014Q2

REPORT INFORMATION
  Report Type: Spontaneous
  Country: US (occurrence: US)
  Receive Date: 20140624
  Receipt Date: 20140624
  Transmission Date: 20141212
  Serious: No
  Sender: FDA-Public Use
  Company Number: US-B.I. PHARMACEUTICALS,INC./RIDGEFIELD-2014-BI-26666BP

PATIENT
  Age: 62 Year
  Sex: Female
  Weight: 67.13 kg

DRUGS (4)
  1. SPIRIVA [Suspect]
     Indication: PRODUCT USED FOR UNKNOWN INDICATION
     Route: 065
     Dates: start: 20140504, end: 20140506
  2. XOPENEX HFA [Suspect]
     Indication: ASTHMA
     Dosage: DOSE PER APPLICATION AND DAILY DOSE: 2 DF (45 MICROGRAM)
     Route: 055
     Dates: start: 20140504, end: 20140506
  3. XOPENEX HFA [Suspect]
     Indication: EMPHYSEMA
  4. ASMANEX [Suspect]
     Indication: PRODUCT USED FOR UNKNOWN INDICATION
     Route: 065
     Dates: start: 20140504, end: 20140506

REACTIONS (5)
  - Somnolence [Not Recovered/Not Resolved]
  - Feeling abnormal [Not Recovered/Not Resolved]
  - Dizziness [Not Recovered/Not Resolved]
  - Nausea [Not Recovered/Not Resolved]
  - Vomiting [Not Recovered/Not Resolved]
